FAERS Safety Report 24309493 (Version 3)
Quarter: 2024Q4

REPORT INFORMATION
  Report Type: Spontaneous
  Country: ES (occurrence: ES)
  Receive Date: 20240911
  Receipt Date: 20241205
  Transmission Date: 20250115
  Serious: Yes (Other)
  Sender: MDD OPERATIONS
  Company Number: ES-ABBVIE-5798159

PATIENT
  Age: 59 Year
  Sex: Male

DRUGS (8)
  1. XADAGO [Suspect]
     Active Substance: SAFINAMIDE MESYLATE
     Indication: Product used for unknown indication
     Dosage: REDUCES ONLY HALF TABLET
     Dates: end: 202407
  2. XADAGO [Suspect]
     Active Substance: SAFINAMIDE MESYLATE
     Dosage: NOT PROVIDED
  3. CARBIDOPA\LEVODOPA [Suspect]
     Active Substance: CARBIDOPA\LEVODOPA
     Indication: Parkinson^s disease
     Dosage: NOT PROVIDED
     Route: 003
     Dates: start: 20220721
  4. CARBIDOPA\LEVODOPA [Suspect]
     Active Substance: CARBIDOPA\LEVODOPA
     Dosage: INCREASED MORNING DOSE 0.5ML , CONTINUOUS DOSE 2.30 ML EXTRA DOSE IS 2 ML
     Route: 003
     Dates: start: 202407, end: 2024
  5. CARBIDOPA\LEVODOPA [Suspect]
     Active Substance: CARBIDOPA\LEVODOPA
     Dosage: INCREASED THE CONTINUOUS DOSE BY 0.2 ML
     Route: 003
     Dates: start: 202407, end: 2024
  6. CARBIDOPA\LEVODOPA [Suspect]
     Active Substance: CARBIDOPA\LEVODOPA
     Dosage: CONTINUOUS DOSE WAS DECREASED FROM 2.10 EXTRA DOSE IS 2ML
     Route: 003
     Dates: start: 20240628, end: 202407
  7. CARBIDOPA\LEVODOPA [Suspect]
     Active Substance: CARBIDOPA\LEVODOPA
     Dosage: INCREASED CONTINUES DOSE BY 0.2 ML
     Route: 003
     Dates: start: 2024
  8. CARBIDOPA\LEVODOPA [Suspect]
     Active Substance: CARBIDOPA\LEVODOPA
     Dosage: NOT PROVIDED
     Route: 003

REACTIONS (14)
  - Akinesia [Unknown]
  - Stoma site haemorrhage [Recovered/Resolved]
  - Stoma site hypergranulation [Recovered/Resolved]
  - On and off phenomenon [Not Recovered/Not Resolved]
  - Malaise [Not Recovered/Not Resolved]
  - Loss of personal independence in daily activities [Unknown]
  - Speech disorder [Unknown]
  - Poor quality sleep [Unknown]
  - Pollakiuria [Unknown]
  - Feeling abnormal [Unknown]
  - Tremor [Recovering/Resolving]
  - Stoma site discharge [Recovered/Resolved]
  - Anxiety [Unknown]
  - Dyskinesia [Recovering/Resolving]

NARRATIVE: CASE EVENT DATE: 20240101
